FAERS Safety Report 4626604-9 (Version None)
Quarter: 2005Q1

REPORT INFORMATION
  Report Type: 
  Country: None (occurrence: None)
  Receive Date: 20050330
  Receipt Date: 20050317
  Transmission Date: 20050727
  Serious: Yes (Other)
  Sender: FDA-Public Use
  Company Number: 210446

PATIENT
  Age: 11 Year
  Sex: Female

DRUGS (3)
  1. NUTROPIN AQ [Suspect]
     Indication: TURNER'S SYNDROME
     Dosage: 1.9 MG, QD, SUBCUTANEOUS
     Route: 058
     Dates: start: 20040310, end: 20041207
  2. NUTROPIN DEPOT [Suspect]
     Dosage: 21.75 MG, Q2W, SUBCUTANEOUS; 27 MG, Q2W, SUBCUTANEOUS
     Route: 058
     Dates: start: 20020625, end: 20030909
  3. NUTROPIN DEPOT [Suspect]
     Dosage: 21.75 MG, Q2W, SUBCUTANEOUS; 27 MG, Q2W, SUBCUTANEOUS
     Route: 058
     Dates: start: 20030909, end: 20040310

REACTIONS (6)
  - ARTERIAL DISORDER [None]
  - HEPATIC ADENOMA [None]
  - LIVER FUNCTION TEST ABNORMAL [None]
  - PORTAL VEIN THROMBOSIS [None]
  - THERAPEUTIC RESPONSE DECREASED [None]
  - TREATMENT NONCOMPLIANCE [None]
